FAERS Safety Report 14381976 (Version 5)
Quarter: 2018Q1

REPORT INFORMATION
  Report Type: Spontaneous
  Country: ES (occurrence: ES)
  Receive Date: 20180112
  Receipt Date: 20180330
  Transmission Date: 20180509
  Serious: Yes (Other)
  Sender: FDA-Public Use
  Company Number: ES-BAUSCH-BL-2018-000617

PATIENT
  Age: 3 Year
  Sex: Male

DRUGS (13)
  1. PIMECROLIMUS [Suspect]
     Active Substance: PIMECROLIMUS
     Indication: ECZEMA INFECTED
     Route: 065
  2. METRONIDAZOLE. [Suspect]
     Active Substance: METRONIDAZOLE
     Indication: ECZEMA INFECTED
     Route: 065
  3. ERYTHROMYCIN. [Suspect]
     Active Substance: ERYTHROMYCIN
     Indication: DERMATITIS
  4. MUPIROCIN. [Suspect]
     Active Substance: MUPIROCIN
     Indication: DERMATITIS
  5. CYTARABINE. [Suspect]
     Active Substance: CYTARABINE
     Indication: LANGERHANS^ CELL HISTIOCYTOSIS
     Route: 065
  6. PIMECROLIMUS [Suspect]
     Active Substance: PIMECROLIMUS
     Indication: DERMATITIS
  7. METRONIDAZOLE. [Suspect]
     Active Substance: METRONIDAZOLE
     Indication: DERMATITIS
  8. PREDNISONE. [Suspect]
     Active Substance: PREDNISONE
     Indication: LANGERHANS^ CELL HISTIOCYTOSIS
     Route: 065
  9. MUPIROCIN. [Suspect]
     Active Substance: MUPIROCIN
     Indication: ECZEMA INFECTED
     Route: 065
  10. CLOFARABINE. [Suspect]
     Active Substance: CLOFARABINE
     Indication: LANGERHANS^ CELL HISTIOCYTOSIS
     Route: 065
  11. ERYTHROMYCIN. [Suspect]
     Active Substance: ERYTHROMYCIN
     Indication: ECZEMA INFECTED
     Route: 048
  12. VINBLASTINE [Suspect]
     Active Substance: VINBLASTINE
     Indication: LANGERHANS^ CELL HISTIOCYTOSIS
     Route: 065
  13. CLADRIBINE. [Suspect]
     Active Substance: CLADRIBINE
     Indication: LANGERHANS^ CELL HISTIOCYTOSIS
     Route: 065

REACTIONS (2)
  - Demodicidosis [Recovered/Resolved]
  - Drug ineffective [Unknown]
